FAERS Safety Report 18891122 (Version 2)
Quarter: 2021Q1

REPORT INFORMATION
  Report Type: Spontaneous
  Country: US (occurrence: US)
  Receive Date: 20210215
  Receipt Date: 20210304
  Transmission Date: 20210420
  Serious: No
  Sender: FDA-Public Use
  Company Number: US-BEH-2021128370

PATIENT
  Sex: Female

DRUGS (27)
  1. XELJANZ [Concomitant]
     Active Substance: TOFACITINIB CITRATE
  2. METHOTREXATE. [Concomitant]
     Active Substance: METHOTREXATE
  3. CLARINEX [Concomitant]
     Active Substance: DESLORATADINE
  4. MACROBID [CLARITHROMYCIN] [Concomitant]
     Active Substance: CLARITHROMYCIN
  5. COLLAGENASE [Concomitant]
     Active Substance: COLLAGENASE CLOSTRIDIUM HISTOLYTICUM
  6. VANCOMYCIN HCL [Concomitant]
     Active Substance: VANCOMYCIN HYDROCHLORIDE
  7. DICLOFENAC SODIUM. [Concomitant]
     Active Substance: DICLOFENAC SODIUM
  8. BETAMETHASON [BETAMETHASONE] [Concomitant]
     Active Substance: BETAMETHASONE
  9. MOVANTIK [Concomitant]
     Active Substance: NALOXEGOL OXALATE
  10. PREDNISONE. [Concomitant]
     Active Substance: PREDNISONE
  11. REXULTI [Concomitant]
     Active Substance: BREXPIPRAZOLE
  12. TOBRAMYCIN. [Concomitant]
     Active Substance: TOBRAMYCIN
  13. NARATRIPTAN [Concomitant]
     Active Substance: NARATRIPTAN HYDROCHLORIDE
  14. TERBINAFINE HCL [Concomitant]
     Active Substance: TERBINAFINE HYDROCHLORIDE
  15. HIZENTRA [Suspect]
     Active Substance: HUMAN IMMUNOGLOBULIN G
     Indication: IMMUNODEFICIENCY COMMON VARIABLE
     Dosage: 18 GRAM, QW (10G ONE DAY A WEEK AND 8G ONE DAY A WEEK)
     Route: 058
     Dates: start: 2018
  16. CEFDINIR. [Concomitant]
     Active Substance: CEFDINIR
  17. PERCOCET [OXYCODONE HYDROCHLORIDE;OXYCODONE TEREPHTHALATE;PARACETAMOL] [Concomitant]
     Active Substance: ACETAMINOPHEN\OXYCODONE HYDROCHLORIDE\OXYCODONE TEREPHTHALATE
  18. CLINDAMYCIN HCL [Concomitant]
     Active Substance: CLINDAMYCIN HYDROCHLORIDE
  19. ITRACONAZOLE. [Concomitant]
     Active Substance: ITRACONAZOLE
  20. TERCONAZOLE. [Concomitant]
     Active Substance: TERCONAZOLE
  21. DOXYCYCLINE. [Concomitant]
     Active Substance: DOXYCYCLINE
  22. ASPIR LOW [Concomitant]
     Active Substance: ASPIRIN
  23. SULFASALAZINE. [Concomitant]
     Active Substance: SULFASALAZINE
  24. TRIMETHOPRIM. [Concomitant]
     Active Substance: TRIMETHOPRIM
  25. SYMBICORT [Concomitant]
     Active Substance: BUDESONIDE\FORMOTEROL FUMARATE DIHYDRATE
  26. TIZANIDINE HCL [Concomitant]
     Active Substance: TIZANIDINE HYDROCHLORIDE
  27. VYVANSE [Concomitant]
     Active Substance: LISDEXAMFETAMINE DIMESYLATE

REACTIONS (5)
  - Fatigue [Unknown]
  - Injection site haemorrhage [Unknown]
  - Paronychia [Unknown]
  - Weight increased [Unknown]
  - Sinusitis [Unknown]
